FAERS Safety Report 16296423 (Version 1)
Quarter: 2019Q2

REPORT INFORMATION
  Report Type: Spontaneous
  Country: US (occurrence: US)
  Receive Date: 20190509
  Receipt Date: 20190509
  Transmission Date: 20190711
  Serious: Yes (Death)
  Sender: FDA-Public Use
  Company Number: None

PATIENT
  Age: 85 Year
  Sex: Female
  Weight: 52.2 kg

DRUGS (20)
  1. CALCIUM CARBONATE. [Concomitant]
     Active Substance: CALCIUM CARBONATE
  2. DEXAMETHASONE. [Concomitant]
     Active Substance: DEXAMETHASONE
  3. NITROFURANTOIN. [Concomitant]
     Active Substance: NITROFURANTOIN
  4. PANTOPRAZOLE [Concomitant]
     Active Substance: PANTOPRAZOLE
  5. CRANBERRY. [Concomitant]
     Active Substance: CRANBERRY
  6. LEVOTHYROXINE. [Concomitant]
     Active Substance: LEVOTHYROXINE
  7. METHYLPHENIDATE. [Concomitant]
     Active Substance: METHYLPHENIDATE
  8. MIRALAX [Concomitant]
     Active Substance: POLYETHYLENE GLYCOL 3350
  9. VITAMIN C [Concomitant]
     Active Substance: ASCORBIC ACID
  10. ZINC. [Concomitant]
     Active Substance: ZINC
  11. ONDANSETRON [Concomitant]
     Active Substance: ONDANSETRON
  12. BIOTIN [Concomitant]
     Active Substance: BIOTIN
  13. MULTIVITAMIN [Concomitant]
     Active Substance: VITAMINS
  14. ELIQUIS [Concomitant]
     Active Substance: APIXABAN
  15. TEMOZOLOMIDE. [Suspect]
     Active Substance: TEMOZOLOMIDE
     Indication: BRAIN NEOPLASM MALIGNANT
     Route: 048
     Dates: start: 20190426, end: 20190509
  16. ONDANSETRON [Concomitant]
     Active Substance: ONDANSETRON
  17. OXYBUTININ [Concomitant]
     Active Substance: OXYBUTYNIN
  18. SODIUM CHLORIDE. [Concomitant]
     Active Substance: SODIUM CHLORIDE
  19. LEVETIRACETAM. [Concomitant]
     Active Substance: LEVETIRACETAM
  20. MONTELUKAST [Concomitant]
     Active Substance: MONTELUKAST SODIUM

REACTIONS (1)
  - Death [None]

NARRATIVE: CASE EVENT DATE: 20190509
